FAERS Safety Report 4383131-4 (Version None)
Quarter: 2004Q2

REPORT INFORMATION
  Report Type: 
  Country: None (occurrence: None)
  Receive Date: 20040618
  Receipt Date: 20040607
  Transmission Date: 20050107
  Serious: Yes (Hospitalization)
  Sender: FDA-Public Use
  Company Number: US-JNJFOC-20040602470

PATIENT
  Age: 81 Year
  Sex: Male

DRUGS (5)
  1. RISPERDAL [Suspect]
     Indication: PARKINSON'S DISEASE
     Dosage: 2 MG, 1 IN, ORAL
     Route: 048
     Dates: start: 20020401, end: 20020401
  2. REQUIP [Concomitant]
  3. SINEMET [Concomitant]
  4. NEURONTIN [Concomitant]
  5. TERAZOSIN HCL [Concomitant]

REACTIONS (12)
  - ASTHENIA [None]
  - CEREBRAL ATROPHY [None]
  - CONDITION AGGRAVATED [None]
  - FALL [None]
  - FATIGUE [None]
  - HALLUCINATION [None]
  - MEDICATION ERROR [None]
  - NEUROPATHY [None]
  - PARKINSON'S DISEASE [None]
  - RHABDOMYOLYSIS [None]
  - SYNCOPE [None]
  - URINARY INCONTINENCE [None]
